FAERS Safety Report 9470049 (Version 1)
Quarter: 2013Q3

REPORT INFORMATION
  Report Type: Spontaneous
  Country: US (occurrence: US)
  Receive Date: 20130822
  Receipt Date: 20130822
  Transmission Date: 20140515
  Serious: No
  Sender: FDA-Public Use
  Company Number: US-ROXANE LABORATORIES, INC.-2013-RO-01392RO

PATIENT
  Age: 54 Year
  Sex: Female

DRUGS (3)
  1. FLUTICASONE [Suspect]
     Indication: UPPER-AIRWAY COUGH SYNDROME
     Route: 045
     Dates: start: 20130709, end: 20130719
  2. FLUTICASONE [Suspect]
     Route: 045
     Dates: start: 20130811, end: 20130817
  3. LEVOTHYROXINE [Concomitant]
     Indication: HYPOTHYROIDISM
     Dosage: 75 MCG

REACTIONS (1)
  - Diarrhoea [Not Recovered/Not Resolved]
